FAERS Safety Report 9161147 (Version 3)
Quarter: 2013Q2

REPORT INFORMATION
  Report Type: Spontaneous
  Country: CN (occurrence: CN)
  Receive Date: 20130313
  Receipt Date: 20130411
  Transmission Date: 20140414
  Serious: Yes (Death, Other)
  Sender: FDA-Public Use
  Company Number: CN-009507513-1303CHN005421

PATIENT
  Age: 60 Year
  Sex: Male
  Weight: 80 kg

DRUGS (7)
  1. THERAPY UNSPECIFIED [Suspect]
     Dosage: 45 MG, ONCE
     Route: 042
  2. ROCURONIUM BROMIDE [Suspect]
     Dosage: 45 MG, UNK
     Route: 042
  3. DEXAMETHASONE [Concomitant]
     Dosage: 10 MG, UNK
  4. MIDAZOLAM [Concomitant]
     Indication: PAIN IN EXTREMITY
     Dosage: 2 UNK, UNK
     Route: 042
  5. MIDAZOLAM [Concomitant]
     Indication: NERVOUSNESS
     Dosage: 4 MG, UNK
  6. FENTANYL [Concomitant]
     Indication: PAIN IN EXTREMITY
     Dosage: 0.05 MG, UNK
     Route: 042
  7. FENTANYL [Concomitant]
     Indication: NERVOUSNESS
     Dosage: 0.25 MG, UNK

REACTIONS (1)
  - Anaphylactic shock [Fatal]
